FAERS Safety Report 7738534-4 (Version None)
Quarter: 2011Q3

REPORT INFORMATION
  Report Type: 
  Country: None (occurrence: None)
  Receive Date: 20110906
  Receipt Date: 20110817
  Transmission Date: 20111222
  Serious: Yes (Other)
  Sender: FDA-Public Use
  Company Number: FK201101758

PATIENT
  Age: 37 Year
  Sex: Female

DRUGS (3)
  1. PEGINTERFERON ALFA-2A [Suspect]
  2. PENTOSTATIN [Suspect]
     Indication: B-CELL LYMPHOMA
     Dosage: 375 MG/M2, DAY 1
  3. CLADRIBINE [Suspect]
     Indication: B-CELL LYMPHOMA
     Dosage: 0.09 MG/KG, 2-6 DAYS

REACTIONS (26)
  - ALOPECIA [None]
  - DEHYDRATION [None]
  - FATIGUE [None]
  - DYSPNOEA [None]
  - OEDEMA PERIPHERAL [None]
  - BODY TEMPERATURE DECREASED [None]
  - HYPOTHYROIDISM [None]
  - TACHYCARDIA [None]
  - TEMPERATURE INTOLERANCE [None]
  - VOMITING [None]
  - MUSCLE SPASMS [None]
  - EYELID OEDEMA [None]
  - ABDOMINAL PAIN [None]
  - ADRENAL DISORDER [None]
  - AUTOIMMUNE DISORDER [None]
  - AMENORRHOEA [None]
  - NAUSEA [None]
  - CONSTIPATION [None]
  - WEIGHT INCREASED [None]
  - DYSPHONIA [None]
  - HYPOTENSION [None]
  - PREMATURE MENOPAUSE [None]
  - DRY SKIN [None]
  - MENSTRUATION IRREGULAR [None]
  - WEIGHT DECREASED [None]
  - PRIMARY ADRENAL INSUFFICIENCY [None]
